FAERS Safety Report 4350479-9 (Version None)
Quarter: 2004Q2

REPORT INFORMATION
  Report Type: 
  Country: None (occurrence: None)
  Receive Date: 20040430
  Receipt Date: 20040225
  Transmission Date: 20050107
  Serious: Yes (Disabling)
  Sender: FDA-Public Use
  Company Number: PHRM2004FR01029

PATIENT
  Age: 57 Year
  Sex: Male
  Weight: 80 kg

DRUGS (6)
  1. FORADIL [Suspect]
     Indication: ASTHMA
  2. EUPHYLLINE [Concomitant]
     Indication: ASTHMA
  3. ATROVENT [Concomitant]
     Indication: ASTHMA
  4. FLIXOTIDE [Concomitant]
     Indication: ASTHMA
  5. PREDNISONE [Concomitant]
     Indication: ASTHMA
     Dosage: 20 MG, QD
     Route: 048
  6. ROVAMYCINE [Concomitant]

REACTIONS (2)
  - CHOROIDITIS [None]
  - RETINITIS PIGMENTOSA [None]
